FAERS Safety Report 9278293 (Version 1)
Quarter: 2013Q2

REPORT INFORMATION
  Report Type: Spontaneous
  Country: US (occurrence: None)
  Receive Date: 20130506
  Receipt Date: 20130506
  Transmission Date: 20140414
  Serious: No
  Sender: FDA-Public Use
  Company Number: None

PATIENT
  Age: 6 Year
  Sex: Female
  Weight: 34.02 kg

DRUGS (1)
  1. CLONIDINE [Suspect]
     Indication: SLEEP DISORDER
     Dosage: 0.5MG HS PO
     Route: 048

REACTIONS (2)
  - Product packaging issue [None]
  - Incorrect dose administered [None]
